FAERS Safety Report 4377181-1 (Version None)
Quarter: 2004Q2

REPORT INFORMATION
  Report Type: 
  Country: None (occurrence: None)
  Receive Date: 20040614
  Receipt Date: 20040614
  Transmission Date: 20050107
  Serious: Yes (Life-Threatening, Hospitalization)
  Sender: FDA-Public Use
  Company Number: None

PATIENT
  Age: 51 Year
  Sex: Female

DRUGS (3)
  1. METFORMIN HCL [Suspect]
     Indication: DIABETES MELLITUS
     Dosage: ORAL
     Route: 048
     Dates: start: 20040401, end: 20040530
  2. GLUCOTROL [Concomitant]
  3. MOTRIN [Concomitant]

REACTIONS (4)
  - COMA [None]
  - LACTIC ACIDOSIS [None]
  - MENTAL STATUS CHANGES [None]
  - RENAL FAILURE ACUTE [None]
